FAERS Safety Report 4468405-0 (Version None)
Quarter: 2004Q4

REPORT INFORMATION
  Report Type: 
  Country: None (occurrence: None)
  Receive Date: 20041004
  Receipt Date: 20040922
  Transmission Date: 20050328
  Serious: Yes (Life-Threatening, Hospitalization)
  Sender: FDA-Public Use
  Company Number: 207866

PATIENT
  Age: 51 Year
  Sex: Female

DRUGS (3)
  1. CATHFLO ACTIVASE [Suspect]
     Indication: DIALYSIS
     Dosage: 6 MG
     Dates: start: 20040713, end: 20040713
  2. CATHFLO ACTIVASE [Suspect]
     Indication: VASCULAR GRAFT OCCLUSION
     Dosage: 6 MG
     Dates: start: 20040713, end: 20040713
  3. ROCEPHIN [Suspect]
     Dosage: INTRAVENOUS
     Route: 042

REACTIONS (1)
  - ANAPHYLACTIC REACTION [None]
